FAERS Safety Report 5045918-4 (Version None)
Quarter: 2006Q3

REPORT INFORMATION
  Report Type: 
  Country: None (occurrence: None)
  Receive Date: 20060710
  Receipt Date: 20060629
  Transmission Date: 20061208
  Serious: Yes (Life-Threatening, Hospitalization, Other)
  Sender: FDA-Public Use
  Company Number: JP-JNJFOC-20060405321

PATIENT
  Sex: Male

DRUGS (11)
  1. ITRACONAZOLE [Suspect]
     Route: 048
  2. ITRACONAZOLE [Suspect]
     Indication: FUNGAL SKIN INFECTION
     Route: 048
  3. CARVEDILOL [Suspect]
     Indication: HYPERTENSION
     Route: 048
     Dates: start: 20060101, end: 20060418
  4. BENIDIPINE HYDROCHLORIDE [Suspect]
     Indication: HYPERTENSION
     Route: 048
     Dates: start: 20060101, end: 20060418
  5. DOXAZOSIN MESYLATE [Concomitant]
     Indication: HYPERTENSION
     Route: 048
     Dates: start: 20060101, end: 20060418
  6. FAMOTIDINE [Concomitant]
     Route: 065
  7. OLMESARTAN MEDOXOMIL [Concomitant]
     Indication: HYPERTENSION
     Route: 048
     Dates: start: 20060101, end: 20060418
  8. LOXOPROFEN SODIUM [Concomitant]
     Route: 065
     Dates: start: 20060309
  9. CHLORHEXIDINE GLUCONATE [Concomitant]
     Route: 065
     Dates: start: 20060309
  10. CEFOTIAM HEXETYL HYDROCHLORIDE [Concomitant]
     Route: 048
     Dates: start: 20060309
  11. LANOCONAZOLE [Concomitant]
     Route: 061
     Dates: start: 20060414

REACTIONS (2)
  - BLOOD PRESSURE DECREASED [None]
  - BRADYCARDIA [None]
